FAERS Safety Report 6768147-2 (Version None)
Quarter: 2010Q2

REPORT INFORMATION
  Report Type: 
  Country: None (occurrence: None)
  Receive Date: 20100614
  Receipt Date: 20100603
  Transmission Date: 20101027
  Serious: Yes (Other)
  Sender: FDA-Public Use
  Company Number: IN-PFIZER INC-2010070263

PATIENT
  Age: 69 Year
  Sex: Male

DRUGS (4)
  1. VFEND [Suspect]
     Indication: ANTIFUNGAL TREATMENT
     Dosage: 400 MG, 2X/DAY
     Route: 048
  2. VFEND [Interacting]
     Dosage: 200 MG, 2X/DAY
     Route: 048
  3. AMARYL [Interacting]
     Indication: DIABETES MELLITUS
     Dosage: 1 MG, 1X/DAY
     Route: 048
  4. AZACITIDINE [Concomitant]
     Indication: MYELODYSPLASTIC SYNDROME

REACTIONS (6)
  - CONFUSIONAL STATE [None]
  - DELIRIUM [None]
  - DRUG INTERACTION [None]
  - HYPOGLYCAEMIA [None]
  - LOSS OF CONSCIOUSNESS [None]
  - PRESSURE OF SPEECH [None]
